FAERS Safety Report 9435708 (Version 1)
Quarter: 2013Q3

REPORT INFORMATION
  Report Type: Spontaneous
  Country: US (occurrence: None)
  Receive Date: 20130730
  Receipt Date: 20130730
  Transmission Date: 20140515
  Serious: Yes (Death, Other)
  Sender: FDA-Public Use
  Company Number: 2013AP006865

PATIENT
  Age: 70 Year
  Sex: Male

DRUGS (2)
  1. LEVETIRACETAM EXTENDED-RELEASE TABLETS [Suspect]
     Route: 048
  2. TEMOZOLOMIDE [Suspect]
     Indication: ANAPLASTIC ASTROCYTOMA
     Route: 048

REACTIONS (4)
  - Drug-induced liver injury [None]
  - Cholestasis [None]
  - Hepatitis [None]
  - Neoplasm progression [None]
